FAERS Safety Report 23179091 (Version 1)
Quarter: 2023Q4

REPORT INFORMATION
  Report Type: Spontaneous
  Country: SK (occurrence: SK)
  Receive Date: 20231113
  Receipt Date: 20231113
  Transmission Date: 20240109
  Serious: Yes (Hospitalization)
  Sender: FDA-Public Use
  Company Number: SK-STADA-290279

PATIENT
  Age: 19 Year
  Sex: Female

DRUGS (2)
  1. DABIGATRAN [Suspect]
     Active Substance: DABIGATRAN
     Indication: Subclavian vein thrombosis
     Route: 048
     Dates: start: 202112, end: 202206
  2. RIVAROXABAN [Suspect]
     Active Substance: RIVAROXABAN
     Indication: Subclavian vein thrombosis
     Route: 048
     Dates: start: 202206, end: 202208

REACTIONS (1)
  - Drug resistance [Unknown]
